FAERS Safety Report 4343994-5 (Version None)
Quarter: 2004Q2

REPORT INFORMATION
  Report Type: 
  Country: None (occurrence: None)
  Receive Date: 20040419
  Receipt Date: 20040416
  Transmission Date: 20050107
  Serious: Yes (Hospitalization)
  Sender: FDA-Public Use
  Company Number: HQWYE079013AUG03

PATIENT
  Age: 36 Year
  Sex: Male

DRUGS (2)
  1. ETHAMBUTOL (ETHAMBUTOL, UNSPEC) [Suspect]
     Indication: PULMONARY TUBERCULOSIS
     Dosage: 25 MG/KG DAILY
  2. ISONIAZID [Concomitant]

REACTIONS (6)
  - BLINDNESS UNILATERAL [None]
  - OPTIC ATROPHY [None]
  - PITUITARY TUMOUR BENIGN [None]
  - PUPILLARY REFLEX IMPAIRED [None]
  - VISUAL ACUITY REDUCED [None]
  - VISUAL PATHWAY DISORDER [None]
